FAERS Safety Report 9206206 (Version 1)
Quarter: 2013Q1

REPORT INFORMATION
  Report Type: Spontaneous
  Country: US (occurrence: None)
  Receive Date: 20120709
  Receipt Date: 20120709
  Transmission Date: 20140127
  Serious: Yes (Other)
  Sender: FDA-Public Use
  Company Number: PHHY2011US67335

PATIENT
  Age: 74 Year
  Sex: Female

DRUGS (9)
  1. GLEEVEC (IMATINIB) UNKNOWN [Suspect]
     Indication: GASTROINTESTINAL CARCINOMA
     Route: 048
     Dates: start: 200802
  2. VITAMIN B12 (CYANOCOBALMIN) [Concomitant]
  3. ALDACTONE (SPIRONOLACTONE) [Concomitant]
  4. TRICOR (FENOFIBRATE) [Concomitant]
  5. KLOR-CON (POTASSIUM CHLORIDE) [Concomitant]
  6. TRIAMTERENE AND HYDROCHLOROTHIAZID (HYDROCHLOROTHIAZIDE, TRIAMTERENE) [Concomitant]
  7. NEXIUM (ESOMEPRAZOLE MAGNESIUM) [Concomitant]
  8. PREMARIN (ESTROGENS COMJUGATED) [Concomitant]
  9. METOPROLOL (METOPROLOL) [Concomitant]

REACTIONS (3)
  - Haemoglobin decreased [None]
  - Nausea [None]
  - Diarrhoea [None]
